FAERS Safety Report 15864176 (Version 1)
Quarter: 2019Q1

REPORT INFORMATION
  Report Type: Spontaneous
  Country: ES (occurrence: ES)
  Receive Date: 20190124
  Receipt Date: 20190124
  Transmission Date: 20190417
  Serious: Yes (Hospitalization)
  Sender: FDA-Public Use
  Company Number: ES-MYLANLABS-2019M1005575

PATIENT
  Age: 72 Year
  Sex: Male

DRUGS (5)
  1. DICLOFENACO                        /00372301/ [Concomitant]
     Active Substance: DICLOFENAC
     Dosage: UNK
     Dates: start: 20180415
  2. LIXIANA [Concomitant]
     Active Substance: EDOXABAN TOSYLATE
     Indication: ATRIAL FIBRILLATION
     Dosage: 60 DOSAGE FORM, QD
     Dates: start: 2018, end: 20180526
  3. JANUMET [Suspect]
     Active Substance: METFORMIN HYDROCHLORIDE\SITAGLIPTIN PHOSPHATE
     Indication: DIABETES MELLITUS
     Dosage: UNK
     Dates: start: 20180302, end: 20180526
  4. OLMETEC PLUS [Suspect]
     Active Substance: HYDROCHLOROTHIAZIDE\OLMESARTAN MEDOXOMIL
     Indication: HYPERTENSION
     Dosage: 1 DOSAGE FORM, QD
     Dates: start: 20131003, end: 20180526
  5. IBUPROFEN. [Suspect]
     Active Substance: IBUPROFEN
     Indication: PAIN
     Dosage: 600 MILLIGRAM, BID
     Dates: start: 20180328

REACTIONS (3)
  - Lactic acidosis [Recovered/Resolved]
  - Acute kidney injury [Recovered/Resolved]
  - Hepatitis [Recovered/Resolved]

NARRATIVE: CASE EVENT DATE: 20180526
